FAERS Safety Report 6696413-8 (Version None)
Quarter: 2010Q2

REPORT INFORMATION
  Report Type: 
  Country: None (occurrence: None)
  Receive Date: 20100426
  Receipt Date: 20100415
  Transmission Date: 20101027
  Serious: Yes (Other)
  Sender: FDA-Public Use
  Company Number: JP-JNJFOC-20100406019

PATIENT
  Age: 56 Year
  Sex: Male
  Weight: 65 kg

DRUGS (18)
  1. REMICADE [Suspect]
     Indication: CROHN'S DISEASE
     Route: 042
  2. REMICADE [Suspect]
     Route: 042
  3. REMICADE [Suspect]
     Route: 042
  4. REMICADE [Suspect]
     Route: 042
  5. REMICADE [Suspect]
     Route: 042
  6. REMICADE [Suspect]
     Route: 042
  7. REMICADE [Suspect]
     Route: 042
  8. REMICADE [Suspect]
     Route: 042
  9. REMICADE [Suspect]
     Route: 042
  10. REMICADE [Suspect]
     Route: 042
  11. AZELASTINE HCL [Concomitant]
     Indication: PROPHYLAXIS
     Route: 048
  12. PENTASA [Concomitant]
     Indication: CROHN'S DISEASE
     Route: 048
  13. LOPEMIN [Concomitant]
     Indication: DIARRHOEA
     Route: 048
  14. DAI-KENCHU-TO [Concomitant]
     Indication: ABDOMINAL PAIN
     Route: 048
  15. GASCON [Concomitant]
     Indication: ABDOMINAL PAIN
     Route: 048
  16. METHYCOBAL [Concomitant]
     Indication: VITAMIN SUPPLEMENTATION
     Route: 048
  17. PROMAC (POLAPREZINC) [Concomitant]
     Indication: GASTRIC ULCER
     Route: 048
  18. TAGAMET [Concomitant]
     Indication: GASTRIC ULCER
     Route: 048

REACTIONS (1)
  - LUPUS-LIKE SYNDROME [None]
